FAERS Safety Report 10020558 (Version 1)
Quarter: 2014Q1

REPORT INFORMATION
  Report Type: Report from Study
  Country: FR (occurrence: FR)
  Receive Date: 20140319
  Receipt Date: 20140319
  Transmission Date: 20141002
  Serious: Yes (Hospitalization)
  Sender: FDA-Public Use
  Company Number: FR-ROCHE-1363556

PATIENT
  Sex: Female

DRUGS (13)
  1. RITUXIMAB [Suspect]
     Indication: RHEUMATOID ARTHRITIS
     Dosage: D1
     Route: 042
     Dates: start: 20070530
  2. RITUXIMAB [Suspect]
     Dosage: D1
     Route: 042
     Dates: start: 20080109
  3. RITUXIMAB [Suspect]
     Dosage: D15
     Route: 042
     Dates: start: 20080123
  4. RITUXIMAB [Suspect]
     Dosage: D1
     Route: 042
     Dates: start: 20080708
  5. RITUXIMAB [Suspect]
     Dosage: D15
     Route: 042
     Dates: start: 20080722
  6. RITUXIMAB [Suspect]
     Dosage: D1
     Route: 042
     Dates: start: 20091014
  7. RITUXIMAB [Suspect]
     Dosage: D15
     Route: 042
     Dates: start: 20091030
  8. RITUXIMAB [Suspect]
     Dosage: D1
     Route: 042
     Dates: start: 20110808
  9. RITUXIMAB [Suspect]
     Dosage: D15
     Route: 042
     Dates: start: 20110823
  10. RITUXIMAB [Suspect]
     Dosage: D1
     Route: 042
     Dates: start: 20121219
  11. RITUXIMAB [Suspect]
     Dosage: D15
     Route: 042
     Dates: start: 20130102
  12. RITUXIMAB [Suspect]
     Dosage: D1
     Route: 042
     Dates: start: 20131003
  13. RITUXIMAB [Suspect]
     Dosage: D15
     Route: 042
     Dates: start: 20131015

REACTIONS (27)
  - Venous insufficiency [Recovered/Resolved]
  - Occipital neuralgia [Recovered/Resolved]
  - Spinal disorder [Recovered/Resolved]
  - Headache [Recovered/Resolved]
  - Granuloma [Recovered/Resolved]
  - Pyrexia [Recovered/Resolved]
  - Inflammation [Recovered/Resolved]
  - Cystitis escherichia [Recovered/Resolved]
  - Blood pressure increased [Recovered/Resolved]
  - Vertigo [Recovered/Resolved]
  - Asthenia [Recovered/Resolved]
  - Ear disorder [Recovered/Resolved]
  - Influenza [Recovered/Resolved]
  - Hypertension [Recovered/Resolved]
  - Dyspepsia [Unknown]
  - Renal cyst [Unknown]
  - Sinusitis [Recovered/Resolved]
  - Humerus fracture [Not Recovered/Not Resolved]
  - Nausea [Recovered/Resolved]
  - Oedema peripheral [Recovered/Resolved]
  - Dyspnoea [Recovered/Resolved]
  - Urinary tract infection [Recovered/Resolved]
  - Cervicitis [Recovered/Resolved]
  - Vaginal infection [Recovered/Resolved]
  - Influenza like illness [Recovered/Resolved]
  - Upper limb fracture [Not Recovered/Not Resolved]
  - Oedema peripheral [Recovered/Resolved]
